FAERS Safety Report 4464264-0 (Version None)
Quarter: 2004Q4

REPORT INFORMATION
  Report Type: 
  Country: None (occurrence: None)
  Receive Date: 20041001
  Receipt Date: 20040707
  Transmission Date: 20050328
  Serious: Yes (Life-Threatening, Hospitalization)
  Sender: FDA-Public Use
  Company Number: CH-BRISTOL-MYERS SQUIBB COMPANY-12633665

PATIENT
  Age: 60 Year
  Sex: Female
  Weight: 57 kg

DRUGS (8)
  1. CISPLATIN [Suspect]
     Indication: NON-SMALL CELL LUNG CANCER
     Route: 042
     Dates: start: 20020927, end: 20020928
  2. ISIS 3521 [Suspect]
     Indication: NON-SMALL CELL LUNG CANCER
     Route: 042
     Dates: start: 20020927
  3. GEMZAR [Suspect]
     Indication: NON-SMALL CELL LUNG CANCER
     Route: 042
     Dates: start: 20020927
  4. COZAAR [Concomitant]
     Indication: HYPERTENSION
  5. ACETAMINOPHEN [Concomitant]
     Indication: PAIN
  6. TRAMADOL HCL [Concomitant]
     Indication: PAIN
     Route: 048
  7. NAVOBAN [Concomitant]
     Indication: VOMITING
     Dates: start: 20020927, end: 20020927
  8. DEXAMETHASONE [Concomitant]
     Indication: PREMEDICATION

REACTIONS (4)
  - ANGINA UNSTABLE [None]
  - DYSPNOEA [None]
  - PNEUMONIA [None]
  - TROPONIN T INCREASED [None]
